FAERS Safety Report 7787568-2 (Version None)
Quarter: 2011Q3

REPORT INFORMATION
  Report Type: 
  Country: None (occurrence: None)
  Receive Date: 20110929
  Receipt Date: 20110920
  Transmission Date: 20111222
  Serious: Yes (Hospitalization, Other)
  Sender: FDA-Public Use
  Company Number: MY-ASTRAZENECA-2011SE55568

PATIENT
  Age: 34 Year
  Sex: Male

DRUGS (4)
  1. CLONAZEPAM [Concomitant]
     Route: 048
  2. HALOPERIDOL [Concomitant]
     Indication: SEDATION
     Route: 030
  3. HALOPERIDOL [Concomitant]
     Route: 030
  4. SEROQUEL XR [Suspect]
     Indication: MANIA
     Route: 048

REACTIONS (1)
  - LARYNGOSPASM [None]
